FAERS Safety Report 13532619 (Version 1)
Quarter: 2017Q2

REPORT INFORMATION
  Report Type: Report from Study
  Country: CA (occurrence: CA)
  Receive Date: 20170510
  Receipt Date: 20170510
  Transmission Date: 20170830
  Serious: Yes (Other)
  Sender: FDA-Public Use
  Company Number: CA-MYLANLABS-2017M1027503

PATIENT

DRUGS (1)
  1. PREDNISONE. [Suspect]
     Active Substance: PREDNISONE
     Indication: EPILEPSY
     Route: 065

REACTIONS (3)
  - Gastrointestinal haemorrhage [Unknown]
  - Irritability [Unknown]
  - Weight increased [Unknown]
